FAERS Safety Report 5089656-0 (Version None)
Quarter: 2006Q3

REPORT INFORMATION
  Report Type: 
  Country: None (occurrence: None)
  Receive Date: 20060816
  Receipt Date: 20060802
  Transmission Date: 20061208
  Serious: Yes (Hospitalization)
  Sender: FDA-Public Use
  Company Number: THYM-10961

PATIENT
  Age: 47 Year
  Sex: Female

DRUGS (7)
  1. THYMOGLOBULIN [Suspect]
     Indication: RENAL TRANSPLANT
     Dosage: 75 MG IV
     Route: 042
     Dates: start: 20060505, end: 20060505
  2. THYMOGLOBULIN [Suspect]
     Indication: RENAL TRANSPLANT
     Dosage: 100 MG IV
     Route: 042
     Dates: start: 20060506, end: 20060511
  3. SOLU-MEDROL [Concomitant]
  4. PREDNISONE [Concomitant]
  5. CELLCEPT [Concomitant]
  6. CYTOVENE [Concomitant]
  7. TACROLIMUS [Concomitant]

REACTIONS (7)
  - ANURIA [None]
  - ARTHRALGIA [None]
  - DIALYSIS [None]
  - PULMONARY OEDEMA [None]
  - RENAL FAILURE ACUTE [None]
  - SERUM SICKNESS [None]
  - WHITE BLOOD CELL COUNT INCREASED [None]
